FAERS Safety Report 21800299 (Version 3)
Quarter: 2023Q1

REPORT INFORMATION
  Report Type: Spontaneous
  Country: US (occurrence: US)
  Receive Date: 20221230
  Receipt Date: 20230331
  Transmission Date: 20230418
  Serious: Yes (Other)
  Sender: FDA-Public Use
  Company Number: US-PFIZER INC-PV202200132129

PATIENT
  Age: 67 Year
  Sex: Female
  Weight: 72.109 kg

DRUGS (1)
  1. PAXLOVID [Suspect]
     Active Substance: NIRMATRELVIR\RITONAVIR
     Indication: COVID-19 treatment
     Dosage: UNK UNK, 2X/DAY
     Route: 048
     Dates: start: 20221216, end: 20221221

REACTIONS (3)
  - Bronchitis [Unknown]
  - Therapeutic product effect incomplete [Unknown]
  - Nasal congestion [Unknown]
